FAERS Safety Report 9625580 (Version 2)
Quarter: 2013Q4

REPORT INFORMATION
  Report Type: Spontaneous
  Country: FI (occurrence: FI)
  Receive Date: 20131016
  Receipt Date: 20131021
  Transmission Date: 20140711
  Serious: Yes (Disabling, Other)
  Sender: FDA-Public Use
  Company Number: PHHY2013FI115047

PATIENT
  Age: 67 Year
  Sex: Female

DRUGS (3)
  1. LESCOL DEPOT [Suspect]
     Indication: HYPERCHOLESTEROLAEMIA
     Dosage: 1 DF, BID
     Route: 048
     Dates: start: 20130123, end: 20130726
  2. DUACT [Concomitant]
     Indication: RHINITIS
     Dosage: 1 DF, TID
     Route: 048
     Dates: start: 20130123
  3. DUACT [Concomitant]
     Indication: NASAL CONGESTION

REACTIONS (10)
  - Bursitis [Unknown]
  - Tendon disorder [Unknown]
  - Movement disorder [Unknown]
  - Abasia [Unknown]
  - Arthralgia [Recovered/Resolved]
  - Pain [Unknown]
  - Localised oedema [Unknown]
  - Muscle rupture [Unknown]
  - Muscle spasms [Recovered/Resolved]
  - Musculoskeletal discomfort [Unknown]
